FAERS Safety Report 7211301-6 (Version None)
Quarter: 2011Q1

REPORT INFORMATION
  Report Type: 
  Country: None (occurrence: None)
  Receive Date: 20110105
  Receipt Date: 20101231
  Transmission Date: 20110831
  Serious: Yes (Death)
  Sender: FDA-Public Use
  Company Number: US-PFIZER INC-2011000656

PATIENT
  Age: 80 Year
  Sex: Male

DRUGS (5)
  1. PAROXETINE [Suspect]
     Route: 048
  2. AMLODIPINE BESYLATE [Suspect]
     Route: 048
  3. ENALAPRIL MALEATE [Suspect]
     Route: 048
  4. ALPRAZOLAM [Suspect]
     Route: 048
  5. LOVASTATIN [Suspect]
     Route: 048

REACTIONS (1)
  - COMPLETED SUICIDE [None]
